FAERS Safety Report 9167080 (Version 1)
Quarter: 2013Q1

REPORT INFORMATION
  Report Type: Spontaneous
  Country: US (occurrence: None)
  Receive Date: 20130314
  Receipt Date: 20130314
  Transmission Date: 20140127
  Serious: Yes (Life-Threatening, Hospitalization)
  Sender: FDA-Public Use
  Company Number: None

PATIENT
  Age: 68 Year
  Sex: Male
  Weight: 136.5 kg

DRUGS (2)
  1. IODIXANOL [Suspect]
     Indication: CARDIAC OPERATION
     Route: 042
     Dates: start: 20130221, end: 20130221
  2. IODIXANOL [Suspect]
     Indication: VASCULAR OPERATION
     Route: 042
     Dates: start: 20130221, end: 20130221

REACTIONS (4)
  - Anaphylactic shock [None]
  - Acute respiratory failure [None]
  - Hypoxia [None]
  - Cardiac arrest [None]
